FAERS Safety Report 19369531 (Version 4)
Quarter: 2021Q3

REPORT INFORMATION
  Report Type: Report from Study
  Country: BR (occurrence: BR)
  Receive Date: 20210603
  Receipt Date: 20210810
  Transmission Date: 20211014
  Serious: Yes (Other)
  Sender: FDA-Public Use
  Company Number: NVSC2021BR072025

PATIENT
  Age: 52 Year
  Sex: Female

DRUGS (3)
  1. KISQALI [Suspect]
     Active Substance: RIBOCICLIB
     Indication: PRODUCT USED FOR UNKNOWN INDICATION
     Dosage: 3 DF, QD (21 DAY USE AND 7 DAY BREAK)
     Route: 065
     Dates: start: 20210224
  2. KISQALI [Suspect]
     Active Substance: RIBOCICLIB
     Dosage: 3 DF (SECOND CYCLE, 1 HR AFTER BREAKFAST)
     Route: 065
     Dates: start: 20210324
  3. KISQALI [Suspect]
     Active Substance: RIBOCICLIB
     Dosage: 3 DF, QD (21 DAY USE AND 7 DAY BREAK)
     Route: 065

REACTIONS (5)
  - Immunodeficiency [Unknown]
  - White blood cell count decreased [Recovered/Resolved]
  - Decreased immune responsiveness [Recovered/Resolved]
  - Fatigue [Not Recovered/Not Resolved]
  - Anxiety [Unknown]

NARRATIVE: CASE EVENT DATE: 20210316
